FAERS Safety Report 17037659 (Version 2)
Quarter: 2019Q4

REPORT INFORMATION
  Report Type: Report from Study
  Country: GB (occurrence: GB)
  Receive Date: 20191115
  Receipt Date: 20191210
  Transmission Date: 20200122
  Serious: Yes (Other)
  Sender: FDA-Public Use
  Company Number: PHHY2015GB096022

PATIENT
  Age: 36 Year
  Sex: Female

DRUGS (1)
  1. GILENYA [Suspect]
     Active Substance: FINGOLIMOD HYDROCHLORIDE
     Indication: MULTIPLE SCLEROSIS
     Dosage: UNK, QD
     Route: 048
     Dates: start: 20140520

REACTIONS (15)
  - Lumbar vertebral fracture [Unknown]
  - Neck pain [Unknown]
  - Cranial nerve disorder [Unknown]
  - Pollakiuria [Unknown]
  - Ataxia [Unknown]
  - Urinary retention [Unknown]
  - Insomnia [Unknown]
  - Constipation [Unknown]
  - White blood cell count decreased [Unknown]
  - Memory impairment [Unknown]
  - Abdominal pain [Unknown]
  - Lymphocyte count decreased [Unknown]
  - Tremor [Unknown]
  - Urinary hesitation [Unknown]
  - Back pain [Unknown]

NARRATIVE: CASE EVENT DATE: 20150708
